FAERS Safety Report 17946330 (Version 1)
Quarter: 2020Q2

REPORT INFORMATION
  Report Type: Spontaneous
  Country: DE (occurrence: DE)
  Receive Date: 20200625
  Receipt Date: 20200625
  Transmission Date: 20200714
  Serious: Yes (Other)
  Sender: FDA-Public Use
  Company Number: DE-PFIZER INC-2020241168

PATIENT
  Sex: Male

DRUGS (4)
  1. VOTRIENT [Suspect]
     Active Substance: PAZOPANIB HYDROCHLORIDE
     Indication: RENAL CANCER METASTATIC
     Dosage: 400 MG, 1X/DAY
  2. VOTRIENT [Suspect]
     Active Substance: PAZOPANIB HYDROCHLORIDE
     Dosage: 800 MG, ALTERNATE DAY (QOD)
  3. ATORVASTATIN CALCIUM. [Suspect]
     Active Substance: ATORVASTATIN CALCIUM
     Dosage: UNK
  4. VOTRIENT [Suspect]
     Active Substance: PAZOPANIB HYDROCHLORIDE
     Dosage: 400 MG, 2X/DAY

REACTIONS (18)
  - Renal cancer metastatic [Unknown]
  - Skin disorder [Unknown]
  - Infection [Unknown]
  - Dry skin [Unknown]
  - Diarrhoea [Unknown]
  - Proctalgia [Unknown]
  - Sensitive skin [Unknown]
  - Wound [Recovered/Resolved]
  - Ageusia [Unknown]
  - Sleep disorder [Unknown]
  - Taste disorder [Unknown]
  - Impaired healing [Unknown]
  - Skin irritation [Unknown]
  - Oropharyngeal pain [Unknown]
  - Fatigue [Unknown]
  - Liver function test increased [Unknown]
  - Malignant neoplasm progression [Unknown]
  - Cough [Unknown]

NARRATIVE: CASE EVENT DATE: 202004
